FAERS Safety Report 8009479-X (Version None)
Quarter: 2011Q4

REPORT INFORMATION
  Report Type: 
  Country: None (occurrence: None)
  Receive Date: 20111227
  Receipt Date: 20111215
  Transmission Date: 20120403
  Serious: Yes (Other)
  Sender: FDA-Public Use
  Company Number: ES-SANOFI-AVENTIS-2011SA084283

PATIENT
  Age: 72 Year
  Sex: Male
  Weight: 70.2 kg

DRUGS (10)
  1. EXENATIDE [Suspect]
     Indication: TYPE 2 DIABETES MELLITUS
     Route: 065
     Dates: start: 20111125
  2. ASPIRIN [Concomitant]
     Indication: CARDIOVASCULAR EVENT PROPHYLAXIS
     Dates: start: 19931002
  3. ATORVASTATIN [Concomitant]
     Dates: start: 19971002
  4. PENTOXIFYLLINE [Concomitant]
     Indication: VASCULAR INSUFFICIENCY
     Dates: start: 20070827
  5. COROPRES [Concomitant]
     Indication: HYPERTENSION
     Dates: start: 19921002
  6. METFORMIN HCL [Suspect]
     Indication: TYPE 2 DIABETES MELLITUS
     Route: 065
     Dates: start: 20110615
  7. NITRODISC [Concomitant]
     Dates: start: 20070101
  8. SPIRIVA [Concomitant]
     Dates: start: 20070425
  9. EZETIMIBE [Concomitant]
     Dates: start: 20020425
  10. INSULIN GLARGINE [Suspect]
     Indication: TYPE 2 DIABETES MELLITUS
     Dosage: DOSE:24 UNIT(S)
     Route: 065
     Dates: start: 20080225

REACTIONS (1)
  - ANGINA PECTORIS [None]
